FAERS Safety Report 21177230 (Version 1)
Quarter: 2022Q3

REPORT INFORMATION
  Report Type: Spontaneous
  Country: VN (occurrence: None)
  Receive Date: 20220805
  Receipt Date: 20220805
  Transmission Date: 20221026
  Serious: Yes (Hospitalization)
  Sender: FDA-Public Use
  Company Number: VN-ROCHE-3152293

PATIENT
  Age: 35 Year
  Sex: Female

DRUGS (1)
  1. TRASTUZUMAB [Suspect]
     Active Substance: TRASTUZUMAB
     Indication: HER2 positive breast cancer
     Dosage: MAINTENANCE THERAPY OF TRASTUZUMAB EVERY 3 WEEKS X 12 CYCLES
     Route: 065

REACTIONS (2)
  - Breast cancer [Unknown]
  - Therapy partial responder [Unknown]
